FAERS Safety Report 11441548 (Version 2)
Quarter: 2015Q3

REPORT INFORMATION
  Report Type: Spontaneous
  Country: GB (occurrence: GB)
  Receive Date: 20150901
  Receipt Date: 20150908
  Transmission Date: 20151125
  Serious: Yes (Hospitalization, Other)
  Sender: FDA-Public Use
  Company Number: GB-SA-2015SA127785

PATIENT
  Age: 68 Year
  Sex: Male

DRUGS (13)
  1. CLARITHROMYCIN. [Interacting]
     Active Substance: CLARITHROMYCIN
     Indication: MYCOBACTERIUM MARINUM INFECTION
     Route: 065
  2. RIFAMPICIN [Suspect]
     Active Substance: RIFAMPIN
     Indication: MYCOBACTERIUM MARINUM INFECTION
     Route: 065
  3. ETHAMBUTOL [Suspect]
     Active Substance: ETHAMBUTOL HYDROCHLORIDE
     Indication: MYCOBACTERIUM MARINUM INFECTION
     Route: 065
  4. CLARITHROMYCIN. [Interacting]
     Active Substance: CLARITHROMYCIN
     Indication: SKIN ULCER
     Route: 065
  5. ETHAMBUTOL [Suspect]
     Active Substance: ETHAMBUTOL HYDROCHLORIDE
     Indication: DACTYLITIS
     Route: 065
  6. ETHAMBUTOL [Suspect]
     Active Substance: ETHAMBUTOL HYDROCHLORIDE
     Indication: TENOSYNOVITIS
     Route: 065
  7. CLARITHROMYCIN. [Interacting]
     Active Substance: CLARITHROMYCIN
     Indication: TENOSYNOVITIS
     Route: 065
  8. SIMVASTATIN. [Interacting]
     Active Substance: SIMVASTATIN
     Route: 065
  9. RIFAMPICIN [Suspect]
     Active Substance: RIFAMPIN
     Indication: DACTYLITIS
     Route: 065
  10. RIFAMPICIN [Suspect]
     Active Substance: RIFAMPIN
     Indication: TENOSYNOVITIS
     Route: 065
  11. ETHAMBUTOL [Suspect]
     Active Substance: ETHAMBUTOL HYDROCHLORIDE
     Indication: SKIN ULCER
     Route: 065
  12. RIFAMPICIN [Suspect]
     Active Substance: RIFAMPIN
     Indication: SKIN ULCER
     Route: 065
  13. CLARITHROMYCIN. [Interacting]
     Active Substance: CLARITHROMYCIN
     Indication: DACTYLITIS
     Route: 065

REACTIONS (14)
  - Product use issue [Unknown]
  - Nausea [Unknown]
  - Myopathy [Recovering/Resolving]
  - Blood creatine phosphokinase increased [Recovered/Resolved]
  - Pain in extremity [Recovering/Resolving]
  - Eye pain [Unknown]
  - Dysgeusia [Unknown]
  - Rhabdomyolysis [Recovering/Resolving]
  - Drug interaction [Unknown]
  - Blood urea increased [Unknown]
  - Blood creatinine increased [Unknown]
  - Blood potassium increased [Unknown]
  - Acute kidney injury [Recovering/Resolving]
  - Anuria [Recovered/Resolved]
